FAERS Safety Report 16146026 (Version 1)
Quarter: 2019Q2

REPORT INFORMATION
  Report Type: Report from Study
  Country: JP (occurrence: JP)
  Receive Date: 20190402
  Receipt Date: 20190402
  Transmission Date: 20190711
  Serious: Yes (Hospitalization, Other)
  Sender: FDA-Public Use
  Company Number: JP-ASTRAZENECA-2019SE19868

PATIENT
  Age: 50 Year
  Sex: Male
  Weight: 55 kg

DRUGS (1)
  1. IMFINZI [Suspect]
     Active Substance: DURVALUMAB
     Indication: NON-SMALL CELL LUNG CANCER
     Route: 041
     Dates: start: 20190108, end: 20190122

REACTIONS (9)
  - Blood lactate dehydrogenase increased [Unknown]
  - Back pain [Unknown]
  - Metastases to central nervous system [Unknown]
  - Pyrexia [Unknown]
  - Metastases to liver [Unknown]
  - Metastases to bone [Unknown]
  - Radiation pneumonitis [Unknown]
  - Malignant neoplasm progression [Not Recovered/Not Resolved]
  - Blood creatine phosphokinase increased [Unknown]

NARRATIVE: CASE EVENT DATE: 20190125
